FAERS Safety Report 4536081-4 (Version None)
Quarter: 2004Q4

REPORT INFORMATION
  Report Type: 
  Country: None (occurrence: None)
  Receive Date: 20041222
  Receipt Date: 20041222
  Transmission Date: 20050328
  Serious: No
  Sender: FDA-Public Use
  Company Number: None

PATIENT
  Age: 67 Year
  Sex: Male

DRUGS (1)
  1. CALCIUM CHLORIDE [Suspect]
     Indication: HYPERKALAEMIA
     Dosage: 1 G IV
     Route: 042
     Dates: start: 20040820

REACTIONS (3)
  - INFUSION RELATED REACTION [None]
  - LIVEDO RETICULARIS [None]
  - PERIPHERAL COLDNESS [None]
